FAERS Safety Report 8763344 (Version 1)
Quarter: 2012Q4

REPORT INFORMATION
  Report Type: 
  Country: US (occurrence: US)
  Receive Date: 20120831
  Receipt Date: 20120831
  Transmission Date: 20130627
  Serious: No
  Sender: FDA-Public Use
  Company Number: US-PFIZER INC-2012210633

PATIENT
  Age: 78 Year
  Sex: Female
  Weight: 58.05 kg

DRUGS (1)
  1. ADVIL [Suspect]
     Indication: NECK PAIN
     Dosage: 400 mg (two of 200mg), 1x/day
     Route: 048
     Dates: start: 20120826, end: 20120827

REACTIONS (2)
  - Malaise [Not Recovered/Not Resolved]
  - Vomiting [Not Recovered/Not Resolved]
